FAERS Safety Report 12195753 (Version 2)
Quarter: 2016Q1

REPORT INFORMATION
  Report Type: Spontaneous
  Country: JP (occurrence: JP)
  Receive Date: 20160321
  Receipt Date: 20160325
  Transmission Date: 20160526
  Serious: Yes (Other)
  Sender: FDA-Public Use
  Company Number: JP-PFIZER INC-2015374077

PATIENT
  Age: 37 Year
  Sex: Female

DRUGS (3)
  1. FOSPHENYTOIN SODIUM. [Suspect]
     Active Substance: FOSPHENYTOIN SODIUM
     Dosage: 750 MG
     Route: 042
  2. ALEVIATIN /00017401/ [Suspect]
     Active Substance: PHENYTOIN SODIUM
     Dosage: UNK
     Route: 048
  3. TAKEPRON OD [Suspect]
     Active Substance: LANSOPRAZOLE
     Dosage: UNK
     Route: 048
     Dates: start: 201309, end: 201310

REACTIONS (1)
  - Drug eruption [Unknown]
